FAERS Safety Report 4450257-6 (Version None)
Quarter: 2004Q3

REPORT INFORMATION
  Report Type: 
  Country: None (occurrence: None)
  Receive Date: 20040914
  Receipt Date: 20040830
  Transmission Date: 20050211
  Serious: Yes (Death)
  Sender: FDA-Public Use
  Company Number: 198341

PATIENT
  Age: 75 Year
  Sex: Female

DRUGS (11)
  1. AVONEX [Suspect]
     Indication: MULTIPLE SCLEROSIS
     Dates: start: 20000101
  2. ASPIRIN [Concomitant]
  3. NEURONTIN [Concomitant]
  4. ZANTAC [Concomitant]
  5. SENOKOT [Concomitant]
  6. COLACE [Concomitant]
  7. ATENOLOL [Concomitant]
  8. TYLENOL [Concomitant]
  9. VICODIN [Concomitant]
  10. RESTORIL [Concomitant]
  11. REGLAN [Concomitant]

REACTIONS (1)
  - MULTIPLE SCLEROSIS [None]
